FAERS Safety Report 8829040 (Version 2)
Quarter: 2012Q4

REPORT INFORMATION
  Report Type: 
  Country: JP (occurrence: JP)
  Receive Date: 20121008
  Receipt Date: 20121203
  Transmission Date: 20130627
  Serious: Yes (Hospitalization)
  Sender: FDA-Public Use
  Company Number: JP-ROCHE-1139153

PATIENT
  Age: 45 Year
  Sex: Male
  Weight: 58 kg

DRUGS (7)
  1. AVASTIN [Suspect]
     Indication: LUNG ADENOCARCINOMA METASTATIC
     Route: 041
     Dates: start: 20110822, end: 20120507
  2. CARBOPLATIN [Concomitant]
     Indication: LUNG ADENOCARCINOMA METASTATIC
     Route: 041
     Dates: start: 20110822, end: 20120116
  3. PACLITAXEL [Concomitant]
     Indication: LUNG ADENOCARCINOMA METASTATIC
     Route: 041
     Dates: start: 20110822, end: 20120116
  4. OXYCONTIN [Concomitant]
     Indication: PAIN
     Route: 048
  5. NOVAMIN [Concomitant]
     Indication: NAUSEA
     Route: 048
  6. FAMOTIDINE [Concomitant]
     Indication: PROPHYLAXIS
     Route: 048
  7. LOXOPROFEN [Concomitant]
     Indication: PAIN
     Route: 048

REACTIONS (2)
  - Radiation oesophagitis [Recovered/Resolved]
  - Oesophageal ulcer [Recovered/Resolved]
